FAERS Safety Report 4354427-7 (Version None)
Quarter: 2004Q2

REPORT INFORMATION
  Report Type: 
  Country: None (occurrence: None)
  Receive Date: 20040503
  Receipt Date: 20031105
  Transmission Date: 20050107
  Serious: Yes (Hospitalization)
  Sender: FDA-Public Use
  Company Number: PHEH2003US10219

PATIENT

DRUGS (1)
  1. LOTREL [Suspect]

REACTIONS (1)
  - HYPERKALAEMIA [None]
